FAERS Safety Report 7893066-8 (Version None)
Quarter: 2011Q4

REPORT INFORMATION
  Report Type: 
  Country: None (occurrence: None)
  Receive Date: 20111104
  Receipt Date: 20111028
  Transmission Date: 20120403
  Serious: Yes (Other)
  Sender: FDA-Public Use
  Company Number: NL-PFIZER INC-2011266745

PATIENT
  Age: 2 Year

DRUGS (1)
  1. GENOTROPIN [Suspect]

REACTIONS (1)
  - HYPERTENSION [None]
